FAERS Safety Report 22121221 (Version 1)
Quarter: 2023Q1

REPORT INFORMATION
  Report Type: Spontaneous
  Country: CA (occurrence: None)
  Receive Date: 20230321
  Receipt Date: 20230321
  Transmission Date: 20230417
  Serious: Yes (Other)
  Sender: FDA-Public Use
  Company Number: CA-PFIZER INC-202300116416

PATIENT
  Age: 56 Year
  Sex: Female
  Weight: 131.81 kg

DRUGS (1)
  1. METHOTREXATE [Suspect]
     Active Substance: METHOTREXATE
     Indication: Rheumatoid arthritis
     Route: 065

REACTIONS (12)
  - Ovarian cyst [Not Recovered/Not Resolved]
  - Cholelithiasis [Not Recovered/Not Resolved]
  - Arthropathy [Not Recovered/Not Resolved]
  - Diverticulum [Not Recovered/Not Resolved]
  - Bile duct stone [Unknown]
  - Condition aggravated [Unknown]
  - Sleep apnoea syndrome [Unknown]
  - Abdominal pain [Unknown]
  - Hypoaesthesia [Unknown]
  - Bladder pain [Unknown]
  - Contracted bladder [Unknown]
  - Renal pain [Unknown]
